FAERS Safety Report 6082402-3 (Version None)
Quarter: 2009Q1

REPORT INFORMATION
  Report Type: 
  Country: None (occurrence: None)
  Receive Date: 20090130
  Receipt Date: 20080811
  Transmission Date: 20090719
  Serious: Yes (Hospitalization)
  Sender: FDA-Public Use
  Company Number: 8035869

PATIENT
  Age: 42 Year
  Sex: Male
  Weight: 131.81 kg

DRUGS (4)
  1. KEPPRA [Suspect]
     Indication: CONVULSION
     Dosage: 2500 MG 2/D PO
     Route: 048
     Dates: start: 20070101, end: 20080811
  2. KEPPRA [Suspect]
     Indication: CONVULSION
     Dosage: 3500 MG PO
     Route: 048
     Dates: start: 20080811
  3. DILANTIN [Concomitant]
  4. DILAUDID [Concomitant]

REACTIONS (2)
  - PANCREATITIS [None]
  - SOMNOLENCE [None]
